FAERS Safety Report 9292889 (Version 1)
Quarter: 2013Q2

REPORT INFORMATION
  Report Type: Spontaneous
  Country: US (occurrence: US)
  Receive Date: 20130516
  Receipt Date: 20130516
  Transmission Date: 20140414
  Serious: Yes (Hospitalization)
  Sender: FDA-Public Use
  Company Number: US-JNJFOC-20130503142

PATIENT
  Sex: Male
  Weight: 108.86 kg

DRUGS (19)
  1. DURAGESIC [Suspect]
     Indication: ARTHRALGIA
     Route: 062
     Dates: start: 2006, end: 2013
  2. DURAGESIC [Suspect]
     Indication: ARTHRALGIA
     Route: 062
     Dates: start: 2005, end: 2006
  3. DURAGESIC [Suspect]
     Indication: ARTHRALGIA
     Route: 062
     Dates: start: 2006, end: 2013
  4. DURAGESIC [Suspect]
     Indication: ARTHRALGIA
     Route: 062
     Dates: start: 2005, end: 2006
  5. LISINOPRIL [Concomitant]
     Indication: HYPERTENSION
     Route: 048
     Dates: start: 2003
  6. ALLOPURINOL [Concomitant]
     Indication: GOUT
     Route: 048
     Dates: start: 2003
  7. DIGOXIN [Concomitant]
     Indication: ATRIAL FIBRILLATION
     Route: 048
     Dates: start: 2003
  8. EFFEXOR XR [Concomitant]
     Indication: DEPRESSION
     Route: 048
     Dates: start: 2003
  9. FUROSEMIDE [Concomitant]
     Indication: OEDEMA PERIPHERAL
     Route: 048
     Dates: start: 2003
  10. LETAIRIS [Concomitant]
     Indication: PULMONARY THROMBOSIS
     Route: 048
     Dates: start: 2011
  11. LETAIRIS [Concomitant]
     Indication: HYPERTENSION
     Route: 048
     Dates: start: 2011
  12. METFORMIN [Concomitant]
     Indication: DIABETES MELLITUS
     Route: 048
     Dates: start: 2003
  13. POTASSIUM [Concomitant]
     Route: 048
     Dates: start: 2003
  14. TERAZOSIN [Concomitant]
     Indication: CARDIAC DISORDER
     Route: 048
     Dates: start: 2003
  15. TESTOSTERONE [Concomitant]
     Route: 050
     Dates: start: 2003
  16. COUMADIN [Concomitant]
     Indication: ANTICOAGULANT THERAPY
     Route: 048
     Dates: start: 2003
  17. WELLBUTRIN [Concomitant]
     Indication: DEPRESSION
     Route: 048
     Dates: start: 2003
  18. XANAX [Concomitant]
     Dosage: 1-3 TIMES A DAY AS NECESSARY
     Route: 048
     Dates: start: 2003
  19. LORTAB [Concomitant]
     Indication: PAIN
     Dosage: 7.5MG/500MG/TABLET; 1-2 TABLETS EVERY 6 HOURS AS NEEDED
     Route: 048

REACTIONS (5)
  - Rheumatoid arthritis [Recovered/Resolved]
  - Osteoarthritis [Recovered/Resolved]
  - Rheumatoid arthritis [Not Recovered/Not Resolved]
  - Drug effect decreased [Not Recovered/Not Resolved]
  - Drug withdrawal syndrome [Recovered/Resolved]
